FAERS Safety Report 24389209 (Version 1)
Quarter: 2024Q4

REPORT INFORMATION
  Report Type: Report from Study
  Country: US (occurrence: US)
  Receive Date: 20241003
  Receipt Date: 20241003
  Transmission Date: 20250114
  Serious: Yes (Other)
  Sender: JOHNSON AND JOHNSON
  Company Number: US-JNJFOC-20240966416

PATIENT
  Age: 22 Year
  Sex: Male

DRUGS (6)
  1. SPRAVATO [Suspect]
     Active Substance: ESKETAMINE
     Indication: Depression
     Dosage: ^56 MG, 2 TOTAL DOSES^
     Dates: start: 20240624, end: 20240626
  2. SPRAVATO [Suspect]
     Active Substance: ESKETAMINE
     Dosage: ^84 MG, 9 TOTAL DOSES^
     Dates: start: 20240701, end: 20240909
  3. SPRAVATO [Suspect]
     Active Substance: ESKETAMINE
     Dosage: ^28 MG, 1 TOTAL DOSE^
     Dates: start: 20240916, end: 20240916
  4. SPRAVATO [Suspect]
     Active Substance: ESKETAMINE
     Dosage: ^28 MG, 1 TOTAL DOSE^
     Dates: start: 20240923, end: 20240923
  5. ONDANSETRON [Concomitant]
     Active Substance: ONDANSETRON
     Route: 065
  6. LORAZEPAM [Concomitant]
     Active Substance: LORAZEPAM
     Route: 065

REACTIONS (2)
  - Tachycardia [Not Recovered/Not Resolved]
  - Nausea [Unknown]

NARRATIVE: CASE EVENT DATE: 20240923
